FAERS Safety Report 7816566-5 (Version None)
Quarter: 2011Q4

REPORT INFORMATION
  Report Type: 
  Country: None (occurrence: None)
  Receive Date: 20111017
  Receipt Date: 20111012
  Transmission Date: 20120403
  Serious: Yes (Other)
  Sender: FDA-Public Use
  Company Number: US-PFIZER INC-2011243933

PATIENT
  Sex: Male
  Weight: 70.295 kg

DRUGS (5)
  1. EFFEXOR XR [Suspect]
     Indication: DEPRESSION
     Dosage: 150 MG, 1X/DAY
     Dates: start: 20110501
  2. WELLBUTRIN [Concomitant]
     Dosage: UNK
  3. EFFEXOR XR [Suspect]
     Indication: ANXIETY
     Dosage: 150 MG, 1X/DAY
     Route: 048
     Dates: start: 20101201
  4. BUSPIRONE [Concomitant]
     Dosage: UNK
  5. PRILOSEC [Concomitant]
     Dosage: UNK

REACTIONS (4)
  - ALCOHOLISM [None]
  - ERECTILE DYSFUNCTION [None]
  - INSOMNIA [None]
  - DRUG INTOLERANCE [None]
